FAERS Safety Report 10677347 (Version 2)
Quarter: 2015Q1

REPORT INFORMATION
  Report Type: Report from Study
  Country: JP (occurrence: JP)
  Receive Date: 20141226
  Receipt Date: 20150311
  Transmission Date: 20150720
  Serious: Yes (Death)
  Sender: FDA-Public Use
  Company Number: JP-EISAI-201407141

PATIENT
  Age: 82 Year
  Sex: Female

DRUGS (10)
  1. ETHANOL [Concomitant]
     Active Substance: ALCOHOL
  2. LUNESTA [Suspect]
     Active Substance: ESZOPICLONE
     Indication: INSOMNIA
     Route: 048
     Dates: start: 201408
  3. COMELIAN [Concomitant]
     Active Substance: DILAZEP
     Indication: ANGINA PECTORIS
     Dates: end: 20140822
  4. MEVALOTIN [Concomitant]
     Active Substance: PRAVASTATIN SODIUM
     Indication: DYSLIPIDAEMIA
     Dates: end: 20140822
  5. LOXONIN [Concomitant]
     Active Substance: LOXOPROFEN SODIUM
     Indication: BACK PAIN
     Route: 065
     Dates: end: 20140822
  6. MEDITRANS [Concomitant]
     Indication: ANGINA PECTORIS
     Dates: end: 20140822
  7. ROHYPNOL [Concomitant]
     Active Substance: FLUNITRAZEPAM
     Indication: INSOMNIA
     Dates: end: 20140822
  8. HALCION [Concomitant]
     Active Substance: TRIAZOLAM
     Indication: INSOMNIA
     Dates: end: 20140803
  9. ROZEREM [Concomitant]
     Active Substance: RAMELTEON
     Indication: INSOMNIA
     Dates: end: 20140803
  10. SOLANAX [Concomitant]
     Active Substance: ALPRAZOLAM
     Indication: ANXIETY DISORDER
     Dates: end: 20140822

REACTIONS (2)
  - Subarachnoid haemorrhage [Fatal]
  - Alcohol interaction [None]

NARRATIVE: CASE EVENT DATE: 20140823
